FAERS Safety Report 17189346 (Version 6)
Quarter: 2020Q4

REPORT INFORMATION
  Report Type: Report from Study
  Country: GB (occurrence: GB)
  Receive Date: 20191223
  Receipt Date: 20201015
  Transmission Date: 20210113
  Serious: Yes (Hospitalization, Other)
  Sender: FDA-Public Use
  Company Number: GB-ORION CORPORATION ORION PHARMA-19_00007875

PATIENT
  Age: 27 Year
  Sex: Female

DRUGS (9)
  1. CIMZIA [Suspect]
     Active Substance: CERTOLIZUMAB PEGOL
     Dosage: CYCLIC, 1 (TRIMESTER)
     Route: 058
     Dates: start: 20180508
  2. COLECALCIFEROL [Concomitant]
     Active Substance: CHOLECALCIFEROL
     Route: 065
  3. CIMZIA [Suspect]
     Active Substance: CERTOLIZUMAB PEGOL
     Dosage: CYCLIC, 1 (TRIMESTER)
     Route: 058
     Dates: start: 20200815, end: 2020
  4. METHOTREXATE (TRADE NAME UNKNOWN) [Suspect]
     Active Substance: METHOTREXATE
     Indication: PRODUCT USED FOR UNKNOWN INDICATION
     Dosage: 1 TRIMESTER
     Route: 065
  5. ERGOCALCIFEROL. [Concomitant]
     Active Substance: ERGOCALCIFEROL
     Route: 065
  6. CIMZIA [Suspect]
     Active Substance: CERTOLIZUMAB PEGOL
     Dosage: CYCLIC (1 TRIMESTER)
     Route: 058
  7. FOLIC ACID. [Concomitant]
     Active Substance: FOLIC ACID
     Route: 065
  8. CIMZIA [Suspect]
     Active Substance: CERTOLIZUMAB PEGOL
     Indication: PSORIATIC ARTHROPATHY
     Dosage: CYCLIC, 1 (TRIMESTER)
     Route: 058
     Dates: start: 20180430
  9. VITAMIN D [Concomitant]
     Active Substance: VITAMIN D NOS
     Route: 065

REACTIONS (16)
  - Alopecia [Unknown]
  - Poor quality sleep [Unknown]
  - Headache [Unknown]
  - Ear infection [Recovering/Resolving]
  - Maternal exposure during pregnancy [Unknown]
  - Oropharyngeal pain [Recovering/Resolving]
  - Bacterial vaginosis [Unknown]
  - Inflammation [Unknown]
  - Eating disorder [Unknown]
  - Infection [Unknown]
  - Emotional disorder [Unknown]
  - Nasopharyngitis [Recovering/Resolving]
  - Illness [Unknown]
  - Cough [Unknown]
  - Arthritis [Unknown]
  - Diarrhoea [Recovering/Resolving]

NARRATIVE: CASE EVENT DATE: 2019
